FAERS Safety Report 14926420 (Version 1)
Quarter: 2018Q2

REPORT INFORMATION
  Report Type: Spontaneous
  Country: DE (occurrence: DE)
  Receive Date: 20180523
  Receipt Date: 20180523
  Transmission Date: 20180711
  Serious: No
  Sender: FDA-Public Use
  Company Number: DE-HORMOSAN-2018-01512

PATIENT
  Age: 73 Year
  Sex: Male

DRUGS (2)
  1. QUETIAPIN-HORMOSAN 25 MG FILMTABLETTEN [Suspect]
     Active Substance: QUETIAPINE
     Indication: DEPRESSION
     Dosage: 1 DF, QD, IN THE EVENING
     Route: 048
     Dates: start: 20180115
  2. QUETIAPIN-HORMOSAN 25 MG FILMTABLETTEN [Suspect]
     Active Substance: QUETIAPINE
     Dosage: 0.5 DF, QD, IN THE EVENING
     Route: 048

REACTIONS (5)
  - Off label use [Unknown]
  - Muscular weakness [Not Recovered/Not Resolved]
  - Wrong technique in product usage process [Unknown]
  - Somnolence [Not Recovered/Not Resolved]
  - Hypersomnia [Unknown]
